FAERS Safety Report 5818503-1 (Version None)
Quarter: 2008Q3

REPORT INFORMATION
  Report Type: 
  Country: None (occurrence: None)
  Receive Date: 20080718
  Receipt Date: 20080716
  Transmission Date: 20090109
  Serious: Yes (Other)
  Sender: FDA-Public Use
  Company Number: A0736414A

PATIENT
  Age: 62 Year
  Sex: Female

DRUGS (1)
  1. METHYLCELLULOSE SUSPENSION SUGAR FREE ORANGE (METHYLCELLULOSE) [Suspect]
     Indication: DRUG USE FOR UNKNOWN INDICATION
     Dosage: ORAL
     Route: 048

REACTIONS (6)
  - ANORECTAL DISORDER [None]
  - CONSTIPATION [None]
  - DYSCHEZIA [None]
  - FAECES HARD [None]
  - HAEMATOCHEZIA [None]
  - LACERATION [None]
